FAERS Safety Report 18511089 (Version 2)
Quarter: 2020Q4

REPORT INFORMATION
  Report Type: Spontaneous
  Country: US (occurrence: US)
  Receive Date: 20201117
  Receipt Date: 20201203
  Transmission Date: 20210114
  Serious: No
  Sender: FDA-Public Use
  Company Number: US-TEVA-2020-US-1849188

PATIENT
  Sex: Male

DRUGS (4)
  1. TRAZODONE [Suspect]
     Active Substance: TRAZODONE HYDROCHLORIDE
     Dosage: 50 MG
     Route: 065
  2. AUSTEDO [Suspect]
     Active Substance: DEUTETRABENAZINE
     Indication: HUNTINGTON^S DISEASE
     Dosage: 27 MILLIGRAM DAILY; DOSE: TAKE 1 TABLET IN THE MORNING AND 2 TABLETS AT BEDTIME
     Route: 065
     Dates: start: 2018
  3. VITAMIN D3 [Concomitant]
     Active Substance: CHOLECALCIFEROL
  4. MELATONIN [Concomitant]
     Active Substance: MELATONIN

REACTIONS (1)
  - Sleep disorder [Not Recovered/Not Resolved]
